FAERS Safety Report 5958649-0 (Version None)
Quarter: 2008Q4

REPORT INFORMATION
  Report Type: 
  Country: None (occurrence: None)
  Receive Date: 20081119
  Receipt Date: 20081107
  Transmission Date: 20090506
  Serious: Yes (Other)
  Sender: FDA-Public Use
  Company Number: US-PFIZER INC-2008094920

PATIENT
  Sex: Male
  Weight: 137.9 kg

DRUGS (6)
  1. VIAGRA [Suspect]
     Indication: ERECTILE DYSFUNCTION
     Route: 048
  2. PREDNISONE TAB [Suspect]
     Indication: BLINDNESS
     Route: 048
  3. CELEXA [Suspect]
     Indication: ALCOHOLISM
  4. ABILIFY [Suspect]
     Indication: ALCOHOL WITHDRAWAL SYNDROME
  5. CYMBALTA [Suspect]
     Indication: ALCOHOL WITHDRAWAL SYNDROME
  6. VALSARTAN [Concomitant]
     Indication: HYPERTENSION

REACTIONS (7)
  - AGITATION [None]
  - BLINDNESS UNILATERAL [None]
  - COGNITIVE DISORDER [None]
  - ERECTILE DYSFUNCTION [None]
  - LIVER DISORDER [None]
  - OPTIC NERVE DISORDER [None]
  - VISUAL FIELD DEFECT [None]
